FAERS Safety Report 21264795 (Version 1)
Quarter: 2022Q3

REPORT INFORMATION
  Report Type: Spontaneous
  Country: US (occurrence: None)
  Receive Date: 20220827
  Receipt Date: 20220827
  Transmission Date: 20221026
  Serious: Yes (Death, Hospitalization)
  Sender: FDA-Public Use
  Company Number: None

PATIENT
  Sex: Male
  Weight: 89.6 kg

DRUGS (7)
  1. CYCLOPHOSPHAMIDE [Suspect]
     Active Substance: CYCLOPHOSPHAMIDE
  2. CYTARABINE [Concomitant]
     Active Substance: CYTARABINE
  3. DAUNORUBICIN [Concomitant]
     Active Substance: DAUNORUBICIN
  4. DEXAMETHASONE [Concomitant]
     Active Substance: DEXAMETHASONE
  5. MERCAPTOPURINE [Concomitant]
     Active Substance: MERCAPTOPURINE
  6. METHOTREXATE [Concomitant]
     Active Substance: METHOTREXATE
  7. ONCASPAR [Concomitant]
     Active Substance: PEGASPARGASE

REACTIONS (7)
  - Pneumonia [None]
  - Septic shock [None]
  - Confusional state [None]
  - Mucormycosis [None]
  - Hyperbilirubinaemia [None]
  - Lactic acidosis [None]
  - Pulmonary embolism [None]

NARRATIVE: CASE EVENT DATE: 20170603
